FAERS Safety Report 8925569 (Version 2)
Quarter: 2013Q1

REPORT INFORMATION
  Report Type: Spontaneous
  Country: DE (occurrence: DE)
  Receive Date: 20121126
  Receipt Date: 20130128
  Transmission Date: 20140127
  Serious: Yes (Other)
  Sender: FDA-Public Use
  Company Number: DE-PFIZER INC-2012291900

PATIENT
  Age: 30 Year
  Sex: Female

DRUGS (1)
  1. LYRICA [Suspect]
     Dosage: 600 MG/DAY
     Route: 048
     Dates: end: 20130107

REACTIONS (2)
  - Drug abuse [Unknown]
  - Anxiety disorder [Unknown]
